FAERS Safety Report 14861700 (Version 4)
Quarter: 2018Q2

REPORT INFORMATION
  Report Type: Report from Study
  Country: IL (occurrence: IL)
  Receive Date: 20180508
  Receipt Date: 20180613
  Transmission Date: 20180711
  Serious: Yes (Death, Life-Threatening, Hospitalization)
  Sender: FDA-Public Use
  Company Number: IL-PFIZER INC-2018178046

PATIENT
  Age: 79 Year
  Sex: Male

DRUGS (1)
  1. SUTENT [Suspect]
     Active Substance: SUNITINIB MALATE
     Indication: RENAL CELL CARCINOMA
     Dosage: 50 MG, CYCLIC (DAILY; 2 WEEKS ON; 1 WEEK OFF)
     Route: 048
     Dates: start: 20180413, end: 20180427

REACTIONS (7)
  - Skin discolouration [Not Recovered/Not Resolved]
  - Asthenia [Not Recovered/Not Resolved]
  - Condition aggravated [Not Recovered/Not Resolved]
  - Back pain [Recovered/Resolved]
  - Hypotension [Not Recovered/Not Resolved]
  - Sepsis [Fatal]
  - Myalgia [Not Recovered/Not Resolved]

NARRATIVE: CASE EVENT DATE: 201804
